FAERS Safety Report 4621110-X (Version None)
Quarter: 2005Q1

REPORT INFORMATION
  Report Type: 
  Country: None (occurrence: None)
  Receive Date: 20050325
  Receipt Date: 20050315
  Transmission Date: 20050727
  Serious: Yes (Other)
  Sender: FDA-Public Use
  Company Number: BEN 2005-005

PATIENT

DRUGS (1)
  1. BENTYL [Suspect]
     Route: 048

REACTIONS (1)
  - OCULAR DISCOMFORT [None]
